FAERS Safety Report 25121844 (Version 1)
Quarter: 2025Q1

REPORT INFORMATION
  Report Type: Report from Study
  Country: JP (occurrence: JP)
  Receive Date: 20250326
  Receipt Date: 20250326
  Transmission Date: 20250409
  Serious: Yes (Death)
  Sender: ROCHE
  Company Number: JP-ROCHE-10000241607

PATIENT

DRUGS (8)
  1. RITUXIMAB [Suspect]
     Active Substance: RITUXIMAB
     Indication: Haematological malignancy
     Route: 042
  2. RITUXIMAB [Suspect]
     Active Substance: RITUXIMAB
     Indication: Nephrotic syndrome
  3. RITUXIMAB [Suspect]
     Active Substance: RITUXIMAB
     Indication: Microscopic polyangiitis
  4. REMDESIVIR [Concomitant]
     Active Substance: REMDESIVIR
  5. NIRMATRELVIR [Concomitant]
     Active Substance: NIRMATRELVIR
  6. RITONAVIR [Concomitant]
     Active Substance: RITONAVIR
  7. MOLNUPIRAVIR [Concomitant]
     Active Substance: MOLNUPIRAVIR
  8. OBINUTUZUMAB [Concomitant]
     Active Substance: OBINUTUZUMAB

REACTIONS (1)
  - COVID-19 [Fatal]
